FAERS Safety Report 6463749-5 (Version None)
Quarter: 2009Q4

REPORT INFORMATION
  Report Type: 
  Country: None (occurrence: None)
  Receive Date: 20091130
  Receipt Date: 20091130
  Transmission Date: 20100525
  Serious: Yes (Hospitalization)
  Sender: FDA-Public Use
  Company Number: None

PATIENT
  Sex: Female
  Weight: 59 kg

DRUGS (8)
  1. DAUNORUBICIN HCL [Suspect]
     Dosage: 249 MG
  2. ETOPOSIDE [Suspect]
     Dosage: 825 MG
  3. CYTARABINE [Suspect]
     Dosage: 3300 MG
  4. PRIMAVIR [Concomitant]
  5. AMBISOME [Concomitant]
  6. LEVOFED [Concomitant]
  7. LINEZOLID [Concomitant]
  8. MEROPENEM [Concomitant]

REACTIONS (4)
  - BACTERIAL SEPSIS [None]
  - INFLUENZA [None]
  - MULTI-ORGAN DISORDER [None]
  - RESPIRATORY FAILURE [None]
